FAERS Safety Report 6383413-0 (Version None)
Quarter: 2009Q4

REPORT INFORMATION
  Report Type: 
  Country: None (occurrence: None)
  Receive Date: 20091001
  Receipt Date: 20070717
  Transmission Date: 20100525
  Serious: Yes (Other)
  Sender: FDA-Public Use
  Company Number: US-ASTRAZENECA-2007UW09602

PATIENT
  Age: 16006 Day
  Sex: Female
  Weight: 113.9 kg

DRUGS (17)
  1. SEROQUEL [Suspect]
     Indication: BIPOLAR DISORDER
     Route: 048
     Dates: start: 19980901
  2. SEROQUEL [Suspect]
     Dosage: STRENGTH - 25 MG, 100 MG, 200 MG, 300 MG  DOSE - 25 MG - 300 MG
     Route: 048
     Dates: start: 20030908
  3. METHADONE HYDROCHLORIDE [Concomitant]
     Route: 048
     Dates: start: 20051207
  4. BEXTRA [Concomitant]
     Dates: start: 20051207
  5. DEPAKOTE [Concomitant]
     Dosage: STRENGTH - 250 MG, 500 MG  DOSE - 250 MG - 1500 MG DAILY
     Dates: start: 20030818
  6. LEXAPRO [Concomitant]
     Dosage: STRENGTH - 5 MG, 20 MG  DOSE - 5 MG - 20 MG DAILY
     Route: 048
     Dates: start: 20051207
  7. ZOLOFT [Concomitant]
     Dates: start: 20030908
  8. GABAPENTIN [Concomitant]
     Dates: start: 20051207
  9. MOBIC [Concomitant]
     Dates: start: 20051207
  10. TOPROL-XL [Concomitant]
     Dosage: STRENGTH - 50 MG, 100 MG  DOSE - 50 MG - 100 MG DAILY
     Dates: start: 20030918
  11. ZANAFLEX [Concomitant]
     Dosage: STRENGTH - 4 MG, 8 MG  DOSE - 4 MG - 12 MG DAILY
     Dates: start: 20051207
  12. PREVACID [Concomitant]
     Dosage: STRENGTH - 15 MG, 30 MG  DOSE - 15 MG - 30 MG DAILY
     Dates: start: 20030905
  13. VISTARIL [Concomitant]
     Dates: start: 20051207
  14. TOPAMAX [Concomitant]
     Dates: start: 20051207
  15. WELLBUTRIN XL [Concomitant]
     Dates: start: 20041008
  16. ASPIRIN [Concomitant]
     Dates: start: 20051207
  17. LAMICTAL [Concomitant]
     Indication: BIPOLAR I DISORDER
     Dates: start: 20051211

REACTIONS (2)
  - PANCREATITIS [None]
  - PANCREATITIS CHRONIC [None]
